FAERS Safety Report 6575929-9 (Version None)
Quarter: 2010Q1

REPORT INFORMATION
  Report Type: 
  Country: None (occurrence: None)
  Receive Date: 20100209
  Receipt Date: 20090318
  Transmission Date: 20100710
  Serious: Yes (Life-Threatening, Hospitalization, Other)
  Sender: FDA-Public Use
  Company Number: DE-ROCHE-623078

PATIENT
  Sex: Female

DRUGS (2)
  1. AVASTIN [Suspect]
     Dosage: 5TH CYCLE AND  LAST APPLICATION PRIOR TO EVENT WAS ON 9 FEB 2009
     Route: 065
  2. TAXOL [Suspect]
     Dosage: 5TH CYCLE
     Route: 065

REACTIONS (2)
  - GASTRIC HAEMORRHAGE [None]
  - METASTASES TO LIVER [None]
